FAERS Safety Report 10332220 (Version 2)
Quarter: 2014Q4

REPORT INFORMATION
  Report Type: Spontaneous
  Country: US (occurrence: US)
  Receive Date: 20140722
  Receipt Date: 20141008
  Transmission Date: 20150528
  Serious: Yes (Hospitalization)
  Sender: FDA-Public Use
  Company Number: US-BRISTOL-MYERS SQUIBB COMPANY-21205075

PATIENT
  Age: 79 Year
  Sex: Male
  Weight: 77.55 kg

DRUGS (1)
  1. ORENCIA [Suspect]
     Active Substance: ABATACEPT
     Indication: RHEUMATOID ARTHRITIS
     Dosage: FROM 2009, THE PATIENT HAD RECEIVED 23 INFUSIONS BY AUG-2009. ?750M IU OF MONTH
     Route: 042

REACTIONS (1)
  - Seizure [Unknown]
